FAERS Safety Report 12541852 (Version 1)
Quarter: 2016Q3

REPORT INFORMATION
  Report Type: Spontaneous
  Country: BR (occurrence: BR)
  Receive Date: 20160708
  Receipt Date: 20160708
  Transmission Date: 20161109
  Serious: Yes (Other)
  Sender: FDA-Public Use
  Company Number: BR-PFIZER INC-2016118292

PATIENT
  Age: 63 Year
  Sex: Male
  Weight: 73 kg

DRUGS (3)
  1. CARDURAN XL [Suspect]
     Active Substance: DOXAZOSIN MESYLATE
     Indication: BENIGN PROSTATIC HYPERPLASIA
     Dosage: 4 MG, DAILY
     Route: 048
     Dates: start: 2015
  2. MONURIL [Concomitant]
     Active Substance: FOSFOMYCIN SODIUM
     Indication: INFECTION
     Dosage: UNK
  3. CARDURAN XL [Suspect]
     Active Substance: DOXAZOSIN MESYLATE
     Indication: PROSTATIC DISORDER
     Dosage: 4 MG (ONE TABLET), DAILY
     Route: 048
     Dates: start: 2015, end: 2015

REACTIONS (15)
  - Blood pressure decreased [Unknown]
  - Constipation [Unknown]
  - Dizziness [Unknown]
  - Aphthous ulcer [Unknown]
  - Pharyngeal disorder [Unknown]
  - Myocardial infarction [Unknown]
  - Heart rate increased [Unknown]
  - Bone pain [Unknown]
  - Pain [Unknown]
  - Back pain [Unknown]
  - Rhinitis allergic [Unknown]
  - Retinopathy [Unknown]
  - Hypoaesthesia [Unknown]
  - Condition aggravated [Unknown]
  - Formication [Unknown]

NARRATIVE: CASE EVENT DATE: 2015
